FAERS Safety Report 5858617-3 (Version None)
Quarter: 2008Q3

REPORT INFORMATION
  Report Type: 
  Country: None (occurrence: None)
  Receive Date: 20080826
  Receipt Date: 20080814
  Transmission Date: 20090109
  Serious: Yes (Other)
  Sender: FDA-Public Use
  Company Number: JP-PFIZER INC-2008070415

PATIENT
  Age: 53 Year
  Sex: Female

DRUGS (18)
  1. IDARUBICIN HCL [Suspect]
     Indication: ACUTE MYELOMONOCYTIC LEUKAEMIA
  2. VFEND [Suspect]
     Indication: SEPSIS
  3. VFEND [Suspect]
     Indication: BRONCHOPULMONARY ASPERGILLOSIS
  4. FLUCONAZOLE [Suspect]
     Indication: SEPSIS
  5. FLUCONAZOLE [Suspect]
     Indication: BRONCHOPULMONARY ASPERGILLOSIS
  6. CYTARABINE [Suspect]
     Indication: ACUTE MYELOMONOCYTIC LEUKAEMIA
  7. PREDNISOLONE [Suspect]
     Indication: DRUG RASH WITH EOSINOPHILIA AND SYSTEMIC SYMPTOMS
     Dosage: DAILY DOSE:1MG/KG
  8. ALLOPURINOL [Suspect]
     Indication: PROPHYLAXIS
  9. TOSUFLOXACIN [Suspect]
     Indication: SEPSIS
  10. TOSUFLOXACIN [Suspect]
     Indication: BRONCHOPULMONARY ASPERGILLOSIS
  11. MEROPENEM [Suspect]
     Indication: SEPSIS
  12. MEROPENEM [Suspect]
     Indication: BRONCHOPULMONARY ASPERGILLOSIS
  13. VANCOMYCIN HYDROCHLORIDE [Suspect]
     Indication: SEPSIS
  14. VANCOMYCIN HYDROCHLORIDE [Suspect]
     Indication: BRONCHOPULMONARY ASPERGILLOSIS
  15. CEFEPIME [Suspect]
     Indication: SEPSIS
  16. CEFEPIME [Suspect]
     Indication: BRONCHOPULMONARY ASPERGILLOSIS
  17. MICAFUNGIN [Suspect]
     Indication: SEPSIS
  18. MICAFUNGIN [Suspect]
     Indication: BRONCHOPULMONARY ASPERGILLOSIS

REACTIONS (1)
  - DRUG RASH WITH EOSINOPHILIA AND SYSTEMIC SYMPTOMS [None]
